FAERS Safety Report 9663674 (Version 1)
Quarter: 2013Q4

REPORT INFORMATION
  Report Type: Report from Study
  Country: NL (occurrence: NL)
  Receive Date: 20131101
  Receipt Date: 20131101
  Transmission Date: 20140711
  Serious: Yes (Hospitalization)
  Sender: FDA-Public Use
  Company Number: PHHY2013NL122962

PATIENT
  Age: 67 Year
  Sex: Male

DRUGS (4)
  1. ZOMETA [Suspect]
     Indication: PROSTATE CANCER METASTATIC
     Dosage: 4 MG/100ML ,ONCE EVERY 12 WEEKS
     Route: 042
  2. ZOMETA [Suspect]
     Dosage: 4 MG/100ML ,ONCE EVERY 12 WEEKS
     Route: 042
     Dates: start: 20100714
  3. ZOMETA [Suspect]
     Dosage: 4 MG/100ML ,ONCE EVERY 12 WEEKS
     Route: 042
     Dates: start: 20130807
  4. ZOMETA [Suspect]
     Dosage: 4 MG/100ML ,ONCE EVERY 12 WEEKS
     Route: 042
     Dates: start: 20131029

REACTIONS (1)
  - Cardiac failure [Unknown]
